FAERS Safety Report 26013568 (Version 1)
Quarter: 2025Q4

REPORT INFORMATION
  Report Type: Spontaneous
  Country: US (occurrence: US)
  Receive Date: 20251107
  Receipt Date: 20251107
  Transmission Date: 20260118
  Serious: Yes (Life-Threatening, Hospitalization, Other)
  Sender: NOVO NORDISK
  Company Number: US-NOVOPROD-1553350

PATIENT
  Age: 60 Year
  Sex: Female

DRUGS (1)
  1. VICTOZA [Suspect]
     Active Substance: LIRAGLUTIDE
     Indication: Glucose tolerance impaired
     Dosage: 0.8 ONCE DAILY
     Route: 058
     Dates: start: 2023, end: 2023

REACTIONS (6)
  - Choking [Recovered/Resolved]
  - Dysphagia [Recovered/Resolved]
  - Gastric bypass [Recovered/Resolved]
  - Product use in unapproved indication [Unknown]
  - Drug titration error [Unknown]
  - Product use issue [Unknown]

NARRATIVE: CASE EVENT DATE: 20240108
